FAERS Safety Report 21969926 (Version 2)
Quarter: 2023Q1

REPORT INFORMATION
  Report Type: Report from Study
  Country: BR (occurrence: BR)
  Receive Date: 20230208
  Receipt Date: 20230210
  Transmission Date: 20230418
  Serious: Yes (Other)
  Sender: FDA-Public Use
  Company Number: BR-JNJFOC-20230213574

PATIENT
  Age: 45 Year
  Sex: Male
  Weight: 52 kg

DRUGS (1)
  1. REMICADE [Suspect]
     Active Substance: INFLIXIMAB
     Indication: Crohn^s disease
     Route: 041
     Dates: start: 20180424, end: 202206

REACTIONS (2)
  - Tuberculosis [Unknown]
  - Off label use [Unknown]
